FAERS Safety Report 5737390-3 (Version None)
Quarter: 2008Q2

REPORT INFORMATION
  Report Type: 
  Country: None (occurrence: None)
  Receive Date: 20080514
  Receipt Date: 20080130
  Transmission Date: 20081010
  Serious: No
  Sender: FDA-Public Use
  Company Number: US-BRISTOL-MYERS SQUIBB COMPANY-14058838

PATIENT
  Age: 43 Year
  Sex: Female
  Weight: 46 kg

DRUGS (8)
  1. IXEMPRA FOR INJ [Suspect]
     Indication: BREAST CANCER METASTATIC
     Route: 042
     Dates: start: 20080114
  2. PEPCID [Concomitant]
     Indication: PREMEDICATION
     Route: 042
     Dates: start: 20080114, end: 20080114
  3. TYLENOL [Concomitant]
     Indication: PREMEDICATION
     Route: 048
     Dates: start: 20080114, end: 20080114
  4. BENADRYL [Concomitant]
     Indication: PREMEDICATION
     Route: 042
     Dates: start: 20080114, end: 20080114
  5. DECADRON [Concomitant]
     Indication: PREMEDICATION
     Route: 042
     Dates: start: 20080114, end: 20080114
  6. EFFEXOR [Concomitant]
  7. LEXAPRO [Concomitant]
  8. RITALIN [Concomitant]

REACTIONS (2)
  - ALOPECIA [None]
  - PAIN OF SKIN [None]
